FAERS Safety Report 20871033 (Version 2)
Quarter: 2022Q4

REPORT INFORMATION
  Report Type: Spontaneous
  Country: US (occurrence: US)
  Receive Date: 20220525
  Receipt Date: 20221006
  Transmission Date: 20230113
  Serious: Yes (Hospitalization, Other)
  Sender: FDA-Public Use
  Company Number: US-SPECGX-T202201252

PATIENT
  Age: 26 Year
  Sex: Male
  Weight: 84 kg

DRUGS (2)
  1. DEXTROAMPHET SACCHARAT, AMPHET ASPARTATE, DEXTROAMPHET SULFATE AND AMP [Suspect]
     Active Substance: AMPHETAMINE ASPARTATE\AMPHETAMINE SULFATE\DEXTROAMPHETAMINE SACCHARATE\DEXTROAMPHETAMINE SULFATE
     Indication: Product used for unknown indication
     Dosage: 20 MILLIGRAM
     Route: 048
  2. METHADONE HYDROCHLORIDE [Suspect]
     Active Substance: METHADONE HYDROCHLORIDE
     Indication: Product used for unknown indication
     Dosage: 20-25 ML (200-250 MG)
     Route: 065

REACTIONS (13)
  - Cyanosis [Unknown]
  - Unresponsive to stimuli [Unknown]
  - Apnoea [Unknown]
  - Overdose [Unknown]
  - Sinus tachycardia [Unknown]
  - Blood pressure increased [Unknown]
  - Substance use [Unknown]
  - Malaise [Unknown]
  - Dizziness [Unknown]
  - Visual impairment [Unknown]
  - Nausea [Unknown]
  - Vomiting [Recovered/Resolved]
  - Accidental exposure to product [Unknown]
